FAERS Safety Report 8849977 (Version 1)
Quarter: 2012Q4

REPORT INFORMATION
  Report Type: Report from Study
  Country: CA (occurrence: CA)
  Receive Date: 20121019
  Receipt Date: 20121019
  Transmission Date: 20130627
  Serious: Yes (Other)
  Sender: FDA-Public Use
  Company Number: CA-ROCHE-1146825

PATIENT
  Sex: Female

DRUGS (4)
  1. CAPECITABINE [Suspect]
     Indication: BREAST CANCER
     Route: 048
     Dates: end: 20120531
  2. CAPECITABINE [Suspect]
     Indication: METASTASES TO THORAX
  3. CELEBREX [Concomitant]
  4. FOSAMAX [Concomitant]

REACTIONS (1)
  - Disease progression [Not Recovered/Not Resolved]
